FAERS Safety Report 8406044-7 (Version None)
Quarter: 2012Q2

REPORT INFORMATION
  Report Type: 
  Country: None (occurrence: None)
  Receive Date: 20120604
  Receipt Date: 20120524
  Transmission Date: 20120825
  Serious: Yes (Hospitalization, Other)
  Sender: FDA-Public Use
  Company Number: US-JNJFOC-20110904114

PATIENT
  Sex: Female

DRUGS (10)
  1. LEVAQUIN [Suspect]
     Indication: UPPER RESPIRATORY TRACT INFECTION
     Route: 048
     Dates: start: 20090701
  2. LEVAQUIN [Suspect]
     Indication: EAR INFECTION
     Route: 048
     Dates: start: 20090701
  3. LEVAQUIN [Suspect]
     Indication: STAPHYLOCOCCAL INFECTION
     Route: 048
     Dates: start: 20090701
  4. LEVAQUIN [Suspect]
     Indication: KIDNEY INFECTION
     Route: 048
     Dates: start: 20090701
  5. LEVAQUIN [Suspect]
     Indication: SINUSITIS
     Route: 048
     Dates: start: 20090701
  6. PULMICORT FLEXHALER [Suspect]
     Indication: LUNG INFECTION
     Route: 045
  7. LEVAQUIN [Suspect]
     Indication: PYELONEPHRITIS
     Route: 048
     Dates: start: 20090701
  8. LEVAQUIN [Suspect]
     Indication: PNEUMONIA
     Route: 042
  9. BLOOD PRESSURE MEDICATION NOS [Concomitant]
     Route: 065
  10. FLONASE [Suspect]
     Indication: LUNG INFECTION
     Route: 045

REACTIONS (4)
  - PLANTAR FASCIITIS [None]
  - TENDON RUPTURE [None]
  - EPICONDYLITIS [None]
  - WOUND INFECTION [None]
